FAERS Safety Report 8629892 (Version 3)
Quarter: 2012Q4

REPORT INFORMATION
  Report Type: 
  Country: US (occurrence: US)
  Receive Date: 20120622
  Receipt Date: 20121018
  Transmission Date: 20130627
  Serious: Yes (Other)
  Sender: FDA-Public Use
  Company Number: US-UCBSA-059847

PATIENT
  Age: 35 Year
  Sex: Male
  Weight: 99.79 kg

DRUGS (2)
  1. CIMZIA [Suspect]
     Indication: CROHN^S DISEASE
     Dates: start: 20101207, end: 20120521
  2. IMURAN [Concomitant]
     Dosage: 200 (units unspecified)/day, FOR SEVERAL YEARS

REACTIONS (1)
  - Herpes zoster [Recovered/Resolved]
